FAERS Safety Report 6633639-3 (Version None)
Quarter: 2010Q1

REPORT INFORMATION
  Report Type: 
  Country: None (occurrence: None)
  Receive Date: 20100312
  Receipt Date: 20100308
  Transmission Date: 20100710
  Serious: Yes (Other)
  Sender: FDA-Public Use
  Company Number: US-GENENTECH-298992

PATIENT
  Sex: Male
  Weight: 96.145 kg

DRUGS (1)
  1. RITUXAN [Suspect]
     Indication: LYMPHOMA
     Dosage: 375 MG/M2, 4/WEEK
     Dates: start: 20080409, end: 20100226

REACTIONS (1)
  - CONVULSION [None]
